FAERS Safety Report 6400610-6 (Version None)
Quarter: 2009Q4

REPORT INFORMATION
  Report Type: 
  Country: None (occurrence: None)
  Receive Date: 20091014
  Receipt Date: 20091005
  Transmission Date: 20100525
  Serious: Yes (Other)
  Sender: FDA-Public Use
  Company Number: PHEH2009US13401

PATIENT
  Sex: Female

DRUGS (5)
  1. LOTREL [Suspect]
     Dosage: 10/40 MG
  2. PLAVIX [Concomitant]
     Dosage: 75 MG, UNK
  3. ATENOLOL CHLORTHALIDONE ^BIOCHEMIE^ [Concomitant]
     Dosage: 100MGATEN/25MGCHLOR, UNK
  4. ASPIRIN [Concomitant]
  5. GLUCOSAMINE W/CHONDROITIN [Concomitant]

REACTIONS (5)
  - ARTHRITIS [None]
  - CARTILAGE ATROPHY [None]
  - CHEST PAIN [None]
  - DYSPHAGIA [None]
  - OROPHARYNGEAL PAIN [None]
